FAERS Safety Report 6451254-1 (Version None)
Quarter: 2009Q4

REPORT INFORMATION
  Report Type: 
  Country: None (occurrence: None)
  Receive Date: 20091123
  Receipt Date: 20091111
  Transmission Date: 20100525
  Serious: Yes (Other)
  Sender: FDA-Public Use
  Company Number: IE-ELI_LILLY_AND_COMPANY-IE200911002807

PATIENT
  Sex: Male

DRUGS (6)
  1. BYETTA [Suspect]
     Indication: DIABETES MELLITUS
     Dosage: 10 UG, 2/D
     Dates: start: 20081211, end: 20090101
  2. GLUCOPHAGE [Concomitant]
     Dosage: 1 G, 2/D
  3. PRAVASTATIN [Concomitant]
     Dosage: 20 MG, UNKNOWN
  4. AMARYL [Concomitant]
     Dosage: 6 MG, UNKNOWN
  5. NU-SEALS ASPIRIN [Concomitant]
     Dosage: 75 MG, UNKNOWN
  6. COVERSYL [Concomitant]
     Dosage: 10 MG, UNKNOWN

REACTIONS (1)
  - LEUKAEMIA [None]
